FAERS Safety Report 15745442 (Version 2)
Quarter: 2018Q4

REPORT INFORMATION
  Report Type: Report from Study
  Country: None (occurrence: BR)
  Receive Date: 20181220
  Receipt Date: 20181230
  Transmission Date: 20190205
  Serious: Yes (Other)
  Sender: FDA-Public Use
  Company Number: BR-ABBVIE-16K-020-1606068-00

PATIENT
  Sex: Male
  Weight: 104 kg

DRUGS (4)
  1. HUMIRA [Suspect]
     Active Substance: ADALIMUMAB
     Route: 058
     Dates: start: 2015, end: 2015
  2. HUMIRA [Suspect]
     Active Substance: ADALIMUMAB
     Indication: ANKYLOSING SPONDYLITIS
     Route: 058
     Dates: start: 20140430, end: 2015
  3. HUMIRA [Suspect]
     Active Substance: ADALIMUMAB
     Route: 058
     Dates: start: 2015
  4. HUMIRA [Suspect]
     Active Substance: ADALIMUMAB
     Route: 058
     Dates: start: 20181024

REACTIONS (23)
  - Mobility decreased [Recovering/Resolving]
  - Limb injury [Recovered/Resolved]
  - Nasopharyngitis [Recovered/Resolved]
  - Rhinitis [Recovered/Resolved]
  - Blood count abnormal [Recovered/Resolved]
  - Lacrimation increased [Recovered/Resolved]
  - Osteoarthritis [Not Recovered/Not Resolved]
  - Rhinitis [Recovered/Resolved]
  - Muscular weakness [Unknown]
  - Immunodeficiency [Not Recovered/Not Resolved]
  - Nasopharyngitis [Recovered/Resolved]
  - Anxiety [Recovering/Resolving]
  - Rhinitis [Recovered/Resolved]
  - Pain [Unknown]
  - Weight increased [Recovered/Resolved]
  - Pain [Unknown]
  - Umbilical hernia [Recovered/Resolved]
  - Lacrimation increased [Recovered/Resolved]
  - Muscle rupture [Unknown]
  - Nasopharyngitis [Recovered/Resolved]
  - Arthralgia [Unknown]
  - White blood cell count abnormal [Recovered/Resolved]
  - Osteoarthritis [Unknown]

NARRATIVE: CASE EVENT DATE: 2015
